FAERS Safety Report 7397114-3 (Version None)
Quarter: 2011Q2

REPORT INFORMATION
  Report Type: 
  Country: None (occurrence: None)
  Receive Date: 20110406
  Receipt Date: 20110330
  Transmission Date: 20111010
  Serious: Yes (Other)
  Sender: FDA-Public Use
  Company Number: A0920723A

PATIENT
  Sex: Female

DRUGS (3)
  1. WELLBUTRIN SR [Suspect]
     Indication: DEPRESSION
     Route: 048
     Dates: start: 20030301
  2. EFFEXOR [Concomitant]
  3. BUPROPION HYDROCHLORIDE [Suspect]
     Indication: DEPRESSION
     Dosage: 100MG PER DAY
     Route: 048

REACTIONS (8)
  - DRUG INEFFECTIVE [None]
  - FATIGUE [None]
  - MANIA [None]
  - MALAISE [None]
  - FEELING ABNORMAL [None]
  - TINNITUS [None]
  - NAUSEA [None]
  - AGITATION [None]
